FAERS Safety Report 7711035-5 (Version None)
Quarter: 2011Q3

REPORT INFORMATION
  Report Type: 
  Country: None (occurrence: None)
  Receive Date: 20110825
  Receipt Date: 20110819
  Transmission Date: 20111222
  Serious: Yes (Death, Hospitalization)
  Sender: FDA-Public Use
  Company Number: CH-BRISTOL-MYERS SQUIBB COMPANY-15979560

PATIENT
  Age: 70 Year
  Sex: Male

DRUGS (6)
  1. NOVOMIX [Concomitant]
     Dates: start: 20100101
  2. IPILIMUMAB [Suspect]
     Indication: MALIGNANT MELANOMA
     Dosage: 260MG 20JUL2011 IV 260MG 10AUG2011 IV
     Route: 042
     Dates: start: 20110720
  3. BISOPROLOL FUMARATE [Concomitant]
     Dates: start: 20100101, end: 20110817
  4. TORSEMIDE [Concomitant]
     Dates: start: 20100101, end: 20110817
  5. ACETYLSALICYLIC ACID SRT [Concomitant]
     Dates: start: 20100101, end: 20110817
  6. LEVEMIR [Concomitant]
     Dates: start: 20100101

REACTIONS (2)
  - HEPATITIS [None]
  - RENAL FAILURE [None]
